FAERS Safety Report 8007680-2 (Version None)
Quarter: 2011Q4

REPORT INFORMATION
  Report Type: 
  Country: None (occurrence: None)
  Receive Date: 20111227
  Receipt Date: 20110919
  Transmission Date: 20120403
  Serious: No
  Sender: FDA-Public Use
  Company Number: US-ABBOTT-11P-163-0857315-00

PATIENT
  Age: 77 Year
  Sex: Male
  Weight: 74.91 kg

DRUGS (3)
  1. POTASSIUM CITRATE [Concomitant]
     Indication: PRODUCT USED FOR UNKNOWN INDICATION
  2. LUPRON DEPOT [Suspect]
     Indication: PROSTATE CANCER
     Dosage: LAST INJECTION REC'D IN AUG 2011
     Route: 030
     Dates: start: 20101110
  3. DIGOXIN [Concomitant]
     Indication: PRODUCT USED FOR UNKNOWN INDICATION

REACTIONS (6)
  - CONSTIPATION [None]
  - BALANCE DISORDER [None]
  - POLLAKIURIA [None]
  - MYALGIA [None]
  - MUSCLE ATROPHY [None]
  - GAIT DISTURBANCE [None]
